FAERS Safety Report 15391689 (Version 3)
Quarter: 2018Q4

REPORT INFORMATION
  Report Type: Report from Study
  Country: AR (occurrence: AR)
  Receive Date: 20180917
  Receipt Date: 20181101
  Transmission Date: 20190204
  Serious: Yes (Other)
  Sender: FDA-Public Use
  Company Number: AR-BAYER-2018-161351

PATIENT
  Age: 71 Year
  Sex: Female

DRUGS (7)
  1. ASPIRINETAS [Concomitant]
     Active Substance: ASPIRIN
  2. TAMOXIFEN [Concomitant]
     Active Substance: TAMOXIFEN
  3. DELTISONA B [Concomitant]
  4. CALMANTE VITAMINADO PG [Concomitant]
  5. NEXAVAR [Suspect]
     Active Substance: SORAFENIB
     Indication: HEPATOCELLULAR CARCINOMA
     Dosage: 800 MG DAILY
     Route: 048
     Dates: start: 20180713, end: 20180813
  6. NEXAVAR [Suspect]
     Active Substance: SORAFENIB
     Indication: HEPATOCELLULAR CARCINOMA
     Dosage: DAILY DOSE 600 MG
     Route: 048
     Dates: start: 2018, end: 201809
  7. T4 [Concomitant]
     Active Substance: LEVOTHYROXINE

REACTIONS (6)
  - Hyperkeratosis [Recovering/Resolving]
  - Abdominal distension [Not Recovered/Not Resolved]
  - Hypophagia [Not Recovered/Not Resolved]
  - Fatigue [Not Recovered/Not Resolved]
  - Metastasis [Not Recovered/Not Resolved]
  - Limb discomfort [Recovering/Resolving]

NARRATIVE: CASE EVENT DATE: 201807
